FAERS Safety Report 23729889 (Version 3)
Quarter: 2024Q2

REPORT INFORMATION
  Report Type: Spontaneous
  Country: RU (occurrence: RU)
  Receive Date: 20240411
  Receipt Date: 20240612
  Transmission Date: 20240716
  Serious: Yes (Other)
  Sender: FDA-Public Use
  Company Number: RU-NOVOPROD-1201214

PATIENT
  Age: 38 Year
  Sex: Female
  Weight: 79 kg

DRUGS (3)
  1. SAXENDA [Suspect]
     Active Substance: LIRAGLUTIDE
     Indication: Obesity
     Dosage: 0.6 MG, QD
     Route: 058
     Dates: start: 20230330, end: 20230330
  2. SAXENDA [Suspect]
     Active Substance: LIRAGLUTIDE
     Indication: Dyslipidaemia
  3. PHYTOMUCIL NORM [Concomitant]
     Dosage: UNK
     Dates: start: 2022

REACTIONS (6)
  - Loss of consciousness [Recovered/Resolved]
  - Heat illness [Recovered/Resolved]
  - Diarrhoea [Recovered/Resolved]
  - Nausea [Recovered/Resolved]
  - Asthenia [Recovered/Resolved]
  - Dehydration [Recovered/Resolved]

NARRATIVE: CASE EVENT DATE: 20240331
